FAERS Safety Report 4881747-X (Version None)
Quarter: 2006Q1

REPORT INFORMATION
  Report Type: 
  Country: None (occurrence: None)
  Receive Date: 20060116
  Receipt Date: 20051129
  Transmission Date: 20060701
  Serious: Yes (Death)
  Sender: FDA-Public Use
  Company Number: FR-ROCHE-427880

PATIENT
  Age: 49 Year
  Sex: Male
  Weight: 82 kg

DRUGS (6)
  1. XENICAL [Suspect]
     Indication: DRUG USE FOR UNKNOWN INDICATION
     Route: 065
     Dates: start: 20050902
  2. XENICAL [Suspect]
     Dosage: XENICAL RE-INTRODUCED ABOUT TWO MONTHS AFTER DISCONTINUATION.
     Route: 065
  3. FLECAINIDE ACETATE [Interacting]
     Route: 065
  4. CORDARONE [Interacting]
     Route: 065
  5. KREDEX [Concomitant]
     Indication: CARDIOMYOPATHY
     Route: 048
     Dates: start: 20051107
  6. PREVISCAN [Concomitant]
     Indication: ATRIAL FIBRILLATION
     Route: 048
     Dates: start: 20041103

REACTIONS (3)
  - ATRIAL FIBRILLATION [None]
  - DRUG EFFECT DECREASED [None]
  - DRUG INTERACTION [None]
